FAERS Safety Report 7292508-9 (Version None)
Quarter: 2011Q1

REPORT INFORMATION
  Report Type: 
  Country: None (occurrence: None)
  Receive Date: 20110215
  Receipt Date: 20101223
  Transmission Date: 20110831
  Serious: Yes (Hospitalization)
  Sender: FDA-Public Use
  Company Number: US-BAYER-201024399NA

PATIENT
  Sex: Female
  Weight: 169 kg

DRUGS (13)
  1. LASIX [Concomitant]
     Dosage: 40 MG (DAILY DOSE), BID,
  2. LORTAB [Concomitant]
     Dosage: 7.5 MG, PRN
  3. TOPAMAX [Concomitant]
     Dosage: 100 MG DAILY DOSE, BID
  4. AMBIEN CR [Concomitant]
     Dosage: 12.5 MG, HS
  5. AMBIEN [Concomitant]
  6. YASMIN [Suspect]
     Indication: PRODUCT USED FOR UNKNOWN INDICATION
     Route: 048
  7. METOPROLOL TARTRATE [Concomitant]
     Dosage: 50 MG, QD
  8. TOPROL-XL [Concomitant]
     Dosage: 50 MG (DAILY DOSE), QD,
  9. AZOR [Concomitant]
     Dosage: 10MG/40MG DAILY
  10. METOPROLOL TARTRATE [Concomitant]
     Dosage: 50 MG, QD
  11. YAZ [Suspect]
     Indication: PREMENSTRUAL SYNDROME
     Route: 048
     Dates: start: 20090101
  12. PROTONIX [Concomitant]
     Dosage: 40 MG, QD
  13. EFFEXOR XR [Concomitant]
     Dosage: 150 MG, QD

REACTIONS (4)
  - DYSPNOEA [None]
  - PULMONARY EMBOLISM [None]
  - OEDEMA PERIPHERAL [None]
  - DEEP VEIN THROMBOSIS [None]
